FAERS Safety Report 9909155 (Version 2)
Quarter: 2014Q2

REPORT INFORMATION
  Report Type: Spontaneous
  Country: US (occurrence: US)
  Receive Date: 20140219
  Receipt Date: 20140404
  Transmission Date: 20141212
  Serious: No
  Sender: FDA-Public Use
  Company Number: US-009507513-1402USA009243

PATIENT
  Sex: Female
  Weight: 49.89 kg

DRUGS (8)
  1. OXYTROL FOR WOMEN [Suspect]
     Indication: INCONTINENCE
     Dosage: 1 DF, Q4D
     Route: 062
     Dates: start: 2014
  2. SALSALATE [Concomitant]
     Indication: RHEUMATOID ARTHRITIS
     Dosage: UNK, UNKNOWN
  3. PLAQUENIL [Concomitant]
     Indication: RHEUMATOID ARTHRITIS
     Dosage: UNK, UNKNOWN
  4. VITAMIN D (UNSPECIFIED) [Concomitant]
     Indication: RHEUMATOID ARTHRITIS
     Dosage: UNK, UNKNOWN
  5. CALCIUM (UNSPECIFIED) [Concomitant]
     Indication: SJOGREN^S SYNDROME
     Dosage: UNK, UNKNOWN
  6. METOPROLOL [Concomitant]
     Indication: SJOGREN^S SYNDROME
     Dosage: UNK, UNKNOWN
  7. LISINOPRIL [Concomitant]
     Indication: SJOGREN^S SYNDROME
     Dosage: UNK, UNKNOWN
  8. ATORVASTATIN [Concomitant]
     Indication: RAYNAUD^S PHENOMENON
     Dosage: UNK, UNKNOWN

REACTIONS (2)
  - Inappropriate schedule of drug administration [Unknown]
  - Drug effect delayed [Unknown]
